FAERS Safety Report 9030506 (Version 3)
Quarter: 2013Q4

REPORT INFORMATION
  Report Type: Report from Study
  Country: US (occurrence: US)
  Receive Date: 20130122
  Receipt Date: 20131002
  Transmission Date: 20140711
  Serious: Yes (Hospitalization)
  Sender: FDA-Public Use
  Company Number: US-VERTEX PHARMACEUTICALS INC.-2013-000847

PATIENT
  Sex: Female

DRUGS (1)
  1. VX-770 [Suspect]
     Indication: CYSTIC FIBROSIS
     Dosage: 150 MG, BID
     Route: 048
     Dates: start: 20120516

REACTIONS (5)
  - Infective pulmonary exacerbation of cystic fibrosis [Unknown]
  - Pain [Unknown]
  - Malnutrition [Unknown]
  - Lung infection [Recovered/Resolved]
  - Abscess [Recovered/Resolved]
